FAERS Safety Report 16431154 (Version 1)
Quarter: 2019Q2

REPORT INFORMATION
  Report Type: Report from Study
  Country: US (occurrence: US)
  Receive Date: 20190614
  Receipt Date: 20190614
  Transmission Date: 20190711
  Serious: Yes (Other)
  Sender: FDA-Public Use
  Company Number: US-RECRO GAINESVILLE LLC-REPH-2019-000090

PATIENT
  Age: 60 Year
  Sex: Female

DRUGS (7)
  1. VERAPAMIL HYDROCHLORIDE SUSTAINED RELEASE [Suspect]
     Active Substance: VERAPAMIL HYDROCHLORIDE
     Indication: ATRIAL FIBRILLATION
     Dosage: 2.5 MILLIGRAM, BID
     Route: 042
     Dates: start: 198601, end: 198601
  2. PROPRANOLOL [Suspect]
     Active Substance: PROPRANOLOL HYDROCHLORIDE
     Indication: ATRIAL FLUTTER
     Dosage: 10 MILLIGRAM, THREE DOSES
     Route: 048
     Dates: start: 198601, end: 198601
  3. PROPYLTHIOURACIL. [Concomitant]
     Active Substance: PROPYLTHIOURACIL
     Indication: BASEDOW^S DISEASE
     Dosage: 100 MILLIGRAM, Q6H
     Route: 048
     Dates: start: 198601, end: 198601
  4. DIGOXIN. [Suspect]
     Active Substance: DIGOXIN
     Indication: ATRIAL FIBRILLATION
     Dosage: 0.25 MILLIGRAM, ONE TIME DOSE
     Route: 048
     Dates: start: 198601, end: 198601
  5. PROPRANOLOL [Suspect]
     Active Substance: PROPRANOLOL HYDROCHLORIDE
     Indication: ATRIAL FIBRILLATION
  6. DIGOXIN. [Suspect]
     Active Substance: DIGOXIN
     Indication: ATRIAL FLUTTER
     Dosage: 0.5 MILLIGRAM, ONE TIME DOSE
     Route: 048
     Dates: start: 198601, end: 198601
  7. IODINE                             /00082203/ [Concomitant]
     Indication: BASEDOW^S DISEASE
     Dosage: 2 DROP, TID
     Route: 048
     Dates: start: 198601, end: 198601

REACTIONS (3)
  - Rhythm idioventricular [Recovered/Resolved]
  - Off label use [Recovered/Resolved]
  - Sinus node dysfunction [Recovered/Resolved]

NARRATIVE: CASE EVENT DATE: 19860112
